FAERS Safety Report 7638423-X (Version None)
Quarter: 2011Q3

REPORT INFORMATION
  Report Type: 
  Country: None (occurrence: None)
  Receive Date: 20110720
  Receipt Date: 20110708
  Transmission Date: 20111222
  Serious: Yes (Other)
  Sender: FDA-Public Use
  Company Number: 2011SP032063

PATIENT
  Age: 46 Year
  Sex: Female
  Weight: 92 kg

DRUGS (4)
  1. CLONAZEPAM [Concomitant]
  2. LEVOTHYROXINE SODIUM [Concomitant]
  3. RANITIDINE [Concomitant]
  4. CERAZETTE (DESOGESTREL /00754001/) [Suspect]
     Indication: AMENORRHOEA
     Dosage: QD, PO
     Route: 048
     Dates: start: 20090101, end: 20110702

REACTIONS (4)
  - AMENORRHOEA [None]
  - DRUG INEFFECTIVE FOR UNAPPROVED INDICATION [None]
  - MYOCARDIAL INFARCTION [None]
  - WEIGHT INCREASED [None]
